FAERS Safety Report 13232112 (Version 1)
Quarter: 2017Q1

REPORT INFORMATION
  Report Type: Spontaneous
  Country: ES (occurrence: ES)
  Receive Date: 20170214
  Receipt Date: 20170214
  Transmission Date: 20170428
  Serious: Yes (Hospitalization, Other)
  Sender: FDA-Public Use
  Company Number: ES-MYLANLABS-2017M1009121

PATIENT

DRUGS (7)
  1. EFFIENT [Suspect]
     Active Substance: PRASUGREL HYDROCHLORIDE
     Indication: ACUTE MYOCARDIAL INFARCTION
     Dosage: 60 MG, QD
     Route: 048
     Dates: start: 20160914, end: 20160914
  2. BIVALIRUDIN. [Suspect]
     Active Substance: BIVALIRUDIN
     Indication: ACUTE MYOCARDIAL INFARCTION
     Dosage: 250 MG, QD
     Route: 042
     Dates: start: 20160914, end: 20160914
  3. ATORVASTATIN [Concomitant]
     Active Substance: ATORVASTATIN
     Indication: ACUTE MYOCARDIAL INFARCTION
     Dosage: 80MD
     Route: 048
     Dates: start: 20160914
  4. PROPOFOL. [Concomitant]
     Active Substance: PROPOFOL
     Indication: ACUTE MYOCARDIAL INFARCTION
     Dosage: 1 G, QD
     Route: 042
     Dates: start: 20160914
  5. FONDAPARINUX [Suspect]
     Active Substance: FONDAPARINUX
     Indication: ACUTE MYOCARDIAL INFARCTION
     Dosage: 2.5 MG, QD
     Route: 058
     Dates: start: 20160914, end: 20160918
  6. ACETYLSALICYLIC ACID [Suspect]
     Active Substance: ASPIRIN
     Indication: ACUTE MYOCARDIAL INFARCTION
     Dosage: 225 MG, QD
     Route: 042
     Dates: start: 20160914, end: 20160916
  7. OMEPRAZOLE. [Concomitant]
     Active Substance: OMEPRAZOLE
     Indication: PROPHYLAXIS AGAINST GASTROINTESTINAL ULCER
     Dosage: 20MD
     Route: 048
     Dates: start: 20160914

REACTIONS (2)
  - Anaemia [Recovered/Resolved]
  - Drug interaction [Recovered/Resolved]

NARRATIVE: CASE EVENT DATE: 20160914
